FAERS Safety Report 4626819-X (Version None)
Quarter: 2005Q2

REPORT INFORMATION
  Report Type: 
  Country: None (occurrence: None)
  Receive Date: 20050401
  Receipt Date: 20050401
  Transmission Date: 20051028
  Serious: No
  Sender: FDA-Public Use
  Company Number: None

PATIENT
  Age: 6 Month
  Sex: Male
  Weight: 6.804 kg

DRUGS (1)
  1. ELIDEL [Suspect]
     Indication: ECZEMA
     Dosage: TWICE DAILY
     Dates: start: 20041201

REACTIONS (2)
  - CONTRAINDICATION TO MEDICAL TREATMENT [None]
  - INFLUENZA LIKE ILLNESS [None]
